FAERS Safety Report 25081943 (Version 1)
Quarter: 2025Q1

REPORT INFORMATION
  Report Type: Spontaneous
  Country: US (occurrence: US)
  Receive Date: 20250317
  Receipt Date: 20250317
  Transmission Date: 20250409
  Serious: No
  Sender: SANOFI AVENTIS
  Company Number: US-SA-2025SA076608

PATIENT
  Sex: Female
  Weight: 54.82 kg

DRUGS (29)
  1. DUPIXENT [Suspect]
     Active Substance: DUPILUMAB
     Indication: Asthma
     Dosage: 200 MG, QOW
     Route: 058
     Dates: start: 202004
  2. DOXYCYCLINE [Concomitant]
     Active Substance: DOXYCYCLINE
  3. DIFLUCAN [Concomitant]
     Active Substance: FLUCONAZOLE
  4. MUPIROCIN [Concomitant]
     Active Substance: MUPIROCIN
  5. LINEZOLID [Concomitant]
     Active Substance: LINEZOLID
  6. CLINDAMYCIN HYDROCHLORIDE [Concomitant]
     Active Substance: CLINDAMYCIN HYDROCHLORIDE
  7. LORATADINE [Concomitant]
     Active Substance: LORATADINE
  8. ALBUTEROL SULFATE [Concomitant]
     Active Substance: ALBUTEROL SULFATE
  9. PROLIA [Concomitant]
     Active Substance: DENOSUMAB
  10. FISH OIL [Concomitant]
     Active Substance: FISH OIL
  11. HYOSCYAMINE SULFATE [Concomitant]
     Active Substance: HYOSCYAMINE SULFATE
  12. NUVIGIL [Concomitant]
     Active Substance: ARMODAFINIL
  13. EVOXAC [Concomitant]
     Active Substance: CEVIMELINE HYDROCHLORIDE
  14. Alkalol [Concomitant]
  15. BIOTIN [Concomitant]
     Active Substance: BIOTIN
  16. ZINC [Concomitant]
     Active Substance: ZINC
  17. VITAMIN B12 [Concomitant]
     Active Substance: CYANOCOBALAMIN
  18. MAGNESIUM [Concomitant]
     Active Substance: MAGNESIUM
  19. ESTRACE [Concomitant]
     Active Substance: ESTRADIOL
  20. PANTOPRAZOLE SODIUM [Concomitant]
     Active Substance: PANTOPRAZOLE SODIUM
  21. XIIDRA [Concomitant]
     Active Substance: LIFITEGRAST
  22. FLONASE ALLERGY RELIEF [Concomitant]
     Active Substance: FLUTICASONE PROPIONATE
  23. SINGULAIR [Concomitant]
     Active Substance: MONTELUKAST SODIUM
  24. BREO ELLIPTA [Concomitant]
     Active Substance: FLUTICASONE FUROATE\VILANTEROL TRIFENATATE
  25. SPIRIVA RESPIMAT [Concomitant]
     Active Substance: TIOTROPIUM BROMIDE
  26. ASPIRIN [Concomitant]
     Active Substance: ASPIRIN
  27. MODERNA COVID-19 VACCINE [Concomitant]
     Active Substance: ELASOMERAN
  28. VITAMIN D3 [Concomitant]
     Active Substance: CHOLECALCIFEROL
  29. SYSTANE (HYPROMELLOSE 2910 (4000 MPA.S)) [Concomitant]
     Active Substance: HYPROMELLOSE 2910 (4000 MPA.S)

REACTIONS (3)
  - Staphylococcal infection [Unknown]
  - Fungal infection [Not Recovered/Not Resolved]
  - Candida infection [Not Recovered/Not Resolved]
